FAERS Safety Report 5041865-2 (Version None)
Quarter: 2006Q2

REPORT INFORMATION
  Report Type: 
  Country: None (occurrence: None)
  Receive Date: 20060630
  Receipt Date: 20060619
  Transmission Date: 20061013
  Serious: Yes (Other)
  Sender: FDA-Public Use
  Company Number: 2006S1004449

PATIENT
  Age: 65 Year
  Sex: Female
  Weight: 55.3388 kg

DRUGS (5)
  1. LOVASTATIN [Suspect]
     Indication: BLOOD CHOLESTEROL INCREASED
     Dosage: 40 MG; QD; ORAL
     Route: 048
     Dates: start: 20060112, end: 20060115
  2. LOVASTATIN [Suspect]
     Indication: BLOOD CHOLESTEROL INCREASED
     Dosage: 40 MG; QD; ORAL
     Route: 048
     Dates: start: 20060120, end: 20060123
  3. ALENDRONATE SODIUM [Concomitant]
  4. IBUPROFEN [Concomitant]
  5. ATENOLOL [Concomitant]

REACTIONS (11)
  - CHEST PAIN [None]
  - DIZZINESS [None]
  - EAR PAIN [None]
  - HEADACHE [None]
  - HYPERTENSION [None]
  - INSOMNIA [None]
  - MYALGIA [None]
  - NAUSEA [None]
  - TACHYCARDIA [None]
  - TINNITUS [None]
  - VISION BLURRED [None]
